FAERS Safety Report 18559253 (Version 1)
Quarter: 2020Q4

REPORT INFORMATION
  Report Type: Spontaneous
  Country: US (occurrence: US)
  Receive Date: 20201127
  Receipt Date: 20201127
  Transmission Date: 20210114
  Serious: No
  Sender: FDA-Public Use
  Company Number: None

PATIENT
  Age: 63 Year
  Sex: Female

DRUGS (19)
  1. ACETAMINOPHEN 325MG [Concomitant]
  2. SENNA 8.6MG [Concomitant]
  3. INSULIN LISPRO KWIKPEN [Concomitant]
  4. MAGNESIUM OXIDE 400MG [Concomitant]
     Active Substance: MAGNESIUM OXIDE
  5. ARANESP 40MCG [Concomitant]
  6. COLACE [Concomitant]
     Active Substance: DOCUSATE SODIUM
  7. K-PHOS NEUTRAL TABLETS [Concomitant]
  8. PREDNISONE 5MG [Concomitant]
     Active Substance: PREDNISONE
  9. LANTUS SOLOSTAR [Concomitant]
     Active Substance: INSULIN GLARGINE
  10. TACROLIMUS 1MG [Concomitant]
     Active Substance: TACROLIMUS
  11. LOKELMA [Suspect]
     Active Substance: SODIUM ZIRCONIUM CYCLOSILICATE
     Indication: HYPERKALAEMIA
     Route: 048
     Dates: start: 20201104, end: 20201114
  12. PANTOPRAZOLE 40MG [Concomitant]
     Active Substance: PANTOPRAZOLE SODIUM
  13. URSODIOL 300MG [Concomitant]
  14. VORICONAZOLE 200MG [Concomitant]
     Active Substance: VORICONAZOLE
  15. ASPIRIN 81MG [Concomitant]
     Active Substance: ASPIRIN
  16. PRAVASTATIN. [Concomitant]
     Active Substance: PRAVASTATIN
  17. ATOVAQUONE 750MG/5ML SUSP [Concomitant]
  18. FUROSEMIDE 40MG [Concomitant]
     Active Substance: FUROSEMIDE
  19. VALCYTE 450MG [Concomitant]

REACTIONS (1)
  - Oedema peripheral [None]

NARRATIVE: CASE EVENT DATE: 20201114
